FAERS Safety Report 6689690-0 (Version None)
Quarter: 2010Q2

REPORT INFORMATION
  Report Type: 
  Country: None (occurrence: None)
  Receive Date: 20100419
  Receipt Date: 20100419
  Transmission Date: 20101027
  Serious: No
  Sender: FDA-Public Use
  Company Number: None

PATIENT
  Sex: Male

DRUGS (2)
  1. DEPAKOTE ER [Suspect]
     Indication: MIGRAINE
     Dosage: 1 TAB 3 TIMES A DAY
  2. DEPAKOTE ER [Suspect]
     Indication: PROPHYLAXIS
     Dosage: 1 TAB 3 TIMES A DAY

REACTIONS (4)
  - DRUG HYPERSENSITIVITY [None]
  - DRUG INEFFECTIVE [None]
  - PRODUCT SUBSTITUTION ISSUE [None]
  - RASH [None]
